FAERS Safety Report 23669711 (Version 2)
Quarter: 2024Q3

REPORT INFORMATION
  Report Type: Spontaneous
  Country: IN (occurrence: IN)
  Receive Date: 20240325
  Receipt Date: 20240913
  Transmission Date: 20241017
  Serious: Yes (Other)
  Sender: PFIZER
  Company Number: IN-PFIZER INC-2021373839

PATIENT
  Age: 52 Year
  Sex: Female
  Weight: 65 kg

DRUGS (7)
  1. PALBOCICLIB [Suspect]
     Active Substance: PALBOCICLIB
     Indication: Breast cancer metastatic
     Dosage: ONCE A DAY
     Route: 048
     Dates: start: 20200721
  2. PALBOCICLIB [Suspect]
     Active Substance: PALBOCICLIB
     Dosage: 2ND CYCLE
     Dates: start: 20200825
  3. PALBOCICLIB [Suspect]
     Active Substance: PALBOCICLIB
     Dosage: OD FOR 21 DAYS ON F/B 7 DAYS GAP
     Route: 048
  4. PALBOCICLIB [Suspect]
     Active Substance: PALBOCICLIB
     Dosage: 125 MG, CYCLIC, (OD, EVENING, 6 MONTH)
     Route: 048
  5. LETROZOLE [Concomitant]
     Active Substance: LETROZOLE
     Dosage: UNK
  6. LETROZOLE [Concomitant]
     Active Substance: LETROZOLE
     Dosage: 2ND CYCLE
     Dates: start: 20200825
  7. LETROZOLE [Concomitant]
     Active Substance: LETROZOLE
     Dosage: 2.5 MG, (AFTER BREAKFAST, 6 MONTHS)

REACTIONS (5)
  - Blood pressure diastolic decreased [Unknown]
  - Blood pressure systolic increased [Unknown]
  - Blood thyroid stimulating hormone increased [Unknown]
  - Full blood count decreased [Unknown]
  - Off label use [Unknown]
